FAERS Safety Report 9408383 (Version 1)
Quarter: 2013Q3

REPORT INFORMATION
  Report Type: Spontaneous
  Country: US (occurrence: US)
  Receive Date: 20130718
  Receipt Date: 20130718
  Transmission Date: 20140515
  Serious: No
  Sender: FDA-Public Use
  Company Number: US-BAUSCH-BL-2013-003517

PATIENT
  Sex: Female

DRUGS (1)
  1. LOTEMAX (LOTEPREDNOL ETABONATE OPHTHALMIC GEL 0.5%) [Suspect]
     Indication: PRODUCT USED FOR UNKNOWN INDICATION
     Dosage: GTT; OPHTHALMIC
     Route: 047

REACTIONS (1)
  - Instillation site pain [Recovered/Resolved]
